FAERS Safety Report 6732971-2 (Version None)
Quarter: 2010Q2

REPORT INFORMATION
  Report Type: 
  Country: None (occurrence: None)
  Receive Date: 20100517
  Receipt Date: 20100429
  Transmission Date: 20101027
  Serious: Yes (Death, Other)
  Sender: FDA-Public Use
  Company Number: 2010S1002712

PATIENT
  Age: 84 Year
  Sex: Female

DRUGS (1)
  1. .PHOSPHOSOD FLAVOR NOT SPECIFIED [Suspect]
     Indication: COLONOSCOPY
     Dosage: 90 ML; TOTAL; PO
     Route: 048
     Dates: start: 20070626, end: 20070626

REACTIONS (1)
  - RENAL IMPAIRMENT [None]
